FAERS Safety Report 10715173 (Version 4)
Quarter: 2015Q1

REPORT INFORMATION
  Report Type: Spontaneous
  Country: JP (occurrence: JP)
  Receive Date: 20150115
  Receipt Date: 20150320
  Transmission Date: 20150721
  Serious: Yes (Death)
  Sender: FDA-Public Use
  Company Number: JP-ROCHE-1521892

PATIENT
  Age: 66 Year
  Sex: Male

DRUGS (12)
  1. MIRAPEX [Concomitant]
     Active Substance: PRAMIPEXOLE DIHYDROCHLORIDE
     Indication: PARKINSON^S DISEASE
     Route: 048
     Dates: end: 20150109
  2. EVIPROSTAT (JAPAN) [Concomitant]
     Route: 048
     Dates: end: 20150109
  3. TAMIFLU [Suspect]
     Active Substance: OSELTAMIVIR PHOSPHATE
     Indication: ANTIVIRAL PROPHYLAXIS
     Route: 048
     Dates: start: 20150108
  4. AMARYL [Concomitant]
     Active Substance: GLIMEPIRIDE
     Route: 048
     Dates: end: 20150109
  5. MIDODRINE HYDROCHLORIDE. [Concomitant]
     Active Substance: MIDODRINE HYDROCHLORIDE
     Indication: BLOOD PRESSURE DECREASED
     Dosage: REPORTED AS : METLIGINE
     Route: 048
     Dates: end: 20150109
  6. URIEF [Concomitant]
     Active Substance: SILODOSIN
     Route: 048
     Dates: end: 20150109
  7. LANDSEN [Concomitant]
     Active Substance: CLONAZEPAM
     Route: 048
     Dates: end: 20150109
  8. SELEGILINE HYDROCHLORIDE. [Concomitant]
     Active Substance: SELEGILINE HYDROCHLORIDE
     Indication: PARKINSON^S DISEASE
     Dosage: REPORTED AS : FP
     Route: 048
     Dates: end: 20150109
  9. MENESIT [Concomitant]
     Active Substance: CARBIDOPA\LEVODOPA
     Indication: PARKINSON^S DISEASE
     Route: 048
     Dates: end: 20150109
  10. MAGLAX [Concomitant]
     Active Substance: MAGNESIUM OXIDE
     Route: 048
     Dates: end: 20150109
  11. TAKEPRON [Concomitant]
     Active Substance: LANSOPRAZOLE
     Route: 048
     Dates: end: 20150109
  12. JANUVIA [Concomitant]
     Active Substance: SITAGLIPTIN PHOSPHATE
     Route: 048
     Dates: end: 20150109

REACTIONS (2)
  - Cardio-respiratory arrest [Fatal]
  - Delirium [Recovered/Resolved]

NARRATIVE: CASE EVENT DATE: 20150109
